FAERS Safety Report 4968003-6 (Version None)
Quarter: 2006Q2

REPORT INFORMATION
  Report Type: 
  Country: None (occurrence: None)
  Receive Date: 20060403
  Receipt Date: 20060323
  Transmission Date: 20061013
  Serious: Yes (Other)
  Sender: FDA-Public Use
  Company Number: 2006040797

PATIENT
  Sex: Female
  Weight: 60.782 kg

DRUGS (4)
  1. LIPITOR [Suspect]
     Indication: BLOOD CHOLESTEROL INCREASED
     Dosage: 20 MG (20 MG, 1 IN 1 D),
  2. DIOVAN [Concomitant]
  3. BENICAR [Concomitant]
  4. KLONOPIN [Concomitant]

REACTIONS (9)
  - ABDOMINAL DISTENSION [None]
  - CATARACT [None]
  - CHOKING [None]
  - CONSTIPATION [None]
  - DRUG EFFECT DECREASED [None]
  - FLATULENCE [None]
  - POST PROCEDURAL COMPLICATION [None]
  - VISION BLURRED [None]
  - WRONG TECHNIQUE IN DRUG USAGE PROCESS [None]
